FAERS Safety Report 7844376-1 (Version None)
Quarter: 2011Q4

REPORT INFORMATION
  Report Type: 
  Country: None (occurrence: None)
  Receive Date: 20111025
  Receipt Date: 20111019
  Transmission Date: 20120403
  Serious: Yes (Hospitalization, Other)
  Sender: FDA-Public Use
  Company Number: JP-PFIZER INC-2011085847

PATIENT
  Age: 79 Year
  Sex: Male

DRUGS (5)
  1. EPIRUBICIN HYDROCHLORIDE [Suspect]
     Indication: HEPATIC NEOPLASM MALIGNANT
     Dosage: 50 MG, UNK
     Route: 013
     Dates: start: 20110413
  2. VOLTAREN [Concomitant]
     Indication: PAIN
     Route: 048
  3. VOLTAREN [Concomitant]
     Indication: PYREXIA
  4. GELPART [Concomitant]
     Indication: HEPATIC NEOPLASM MALIGNANT
     Dosage: 1 MG, UNK
     Route: 013
     Dates: start: 20110413
  5. LIPIODOL [Concomitant]
     Indication: HEPATIC NEOPLASM MALIGNANT
     Dosage: 10 ML, UNK
     Route: 013
     Dates: start: 20110413

REACTIONS (2)
  - RENAL FAILURE ACUTE [None]
  - TUMOUR LYSIS SYNDROME [None]
